FAERS Safety Report 20875617 (Version 5)
Quarter: 2022Q3

REPORT INFORMATION
  Report Type: Report from Study
  Country: GB (occurrence: GB)
  Receive Date: 20220526
  Receipt Date: 20220810
  Transmission Date: 20221026
  Serious: Yes (Death, Other)
  Sender: FDA-Public Use
  Company Number: GB-CELLTRION INC.-2021GB019328

PATIENT

DRUGS (75)
  1. TRASTUZUMAB [Suspect]
     Active Substance: TRASTUZUMAB
     Indication: Breast cancer metastatic
     Dosage: 600 MG, EVERY 3 WEEKS (DOSE FORM: 230) (CUMULATIVE DOSE : 4542.857 MG)
     Route: 041
     Dates: start: 20160425
  2. TRASTUZUMAB [Suspect]
     Active Substance: TRASTUZUMAB
     Dosage: 600 MG, EVERY 3 WEEKS (DOSE FORM: 230) (CUMULATIVE DOSE : 4542.857 MG)
     Route: 042
     Dates: start: 20160425
  3. TRASTUZUMAB [Suspect]
     Active Substance: TRASTUZUMAB
     Dosage: 600 MG, EVERY 3 WEEKS (DOSE FORM: 230) (CUMULATIVE DOSE : 47715.48 MG)
     Route: 042
     Dates: start: 20160425
  4. TRASTUZUMAB [Suspect]
     Active Substance: TRASTUZUMAB
     Indication: Breast cancer metastatic
     Dosage: UNK (PHARMACEUTICAL DOSE FORM: 230)
     Route: 058
  5. DOCETAXEL [Suspect]
     Active Substance: DOCETAXEL
     Indication: Breast cancer metastatic
     Dosage: 120 MG, EVERY 3 WEEKS (CUMULATIVE DOSE : 1148.3334 MG)
     Route: 042
     Dates: start: 20160314, end: 20160810
  6. DOCETAXEL [Suspect]
     Active Substance: DOCETAXEL
     Dosage: 120 MG, EVERY 3 WEEKS (CUMULATIVE DOSE : 9782.857 MG)
     Route: 042
     Dates: start: 20160314, end: 20160810
  7. LETROZOLE [Suspect]
     Active Substance: LETROZOLE
     Indication: Breast cancer metastatic
     Dosage: 2.5 UG, 1X/DAY (CUMULATIVE DOSE : 2527.5 UG)
     Route: 048
     Dates: start: 20190709
  8. LETROZOLE [Suspect]
     Active Substance: LETROZOLE
     Dosage: 2.5 MILLIGRAM, QD
     Route: 048
     Dates: start: 20190709
  9. LETROZOLE [Suspect]
     Active Substance: LETROZOLE
     Dosage: 3 MILLIGRAM, QD
     Route: 048
     Dates: start: 20190709
  10. LETROZOLE [Suspect]
     Active Substance: LETROZOLE
     Dosage: 2.5 UG, 1X/DAY (CUMULATIVE DOSE : 1250.104 UG)
     Route: 048
     Dates: start: 20190709
  11. PERTUZUMAB [Suspect]
     Active Substance: PERTUZUMAB
     Indication: Breast cancer metastatic
     Dosage: 840 MG, EVERY 3 WEEKS, INITIAL LOADING DOSE (PHARMACEUTICAL DOSE FORM: 230) (CUMULATIVE DOSE : 6360.
     Route: 042
     Dates: start: 20160425, end: 20160425
  12. PERTUZUMAB [Suspect]
     Active Substance: PERTUZUMAB
     Dosage: 840 MG, EVERY 3 WEEKS, INITIAL LOADING DOSE (PHARMACEUTICAL DOSE FORM: 230) (CUMULATIVE DOSE : 6360.
     Route: 042
     Dates: start: 20160425, end: 20160425
  13. PERTUZUMAB [Suspect]
     Active Substance: PERTUZUMAB
     Dosage: 420 MG, EVERY 3 WEEKS, MAINTENANCE DOSE (PHARMACEUTICAL DOSE FORM: 230) (CUMULATIVE DOSE : 2760.0 MG
     Route: 042
     Dates: start: 20160516
  14. PERTUZUMAB [Suspect]
     Active Substance: PERTUZUMAB
     Dosage: 420 MG, EVERY 3 WEEKS, MAINTENANCE DOSE (PHARMACEUTICAL DOSE FORM: 230)(CUMULATIVE DOSE : 2760.0 MG)
     Route: 042
     Dates: start: 20160516
  15. PERTUZUMAB [Suspect]
     Active Substance: PERTUZUMAB
     Dosage: 420 MG, EVERY 3 WEEKS, MAINTENANCE DOSE (PHARMACEUTICAL DOSE FORM: 230)(CUMULATIVE DOSE : 32980.83 M
     Route: 042
     Dates: start: 20160516
  16. PERTUZUMAB [Suspect]
     Active Substance: PERTUZUMAB
     Dosage: 840 MG, EVERY 3 WEEKS, INITIAL LOADING DOSE (PHARMACEUTICAL DOSE FORM: 230) (CUMULATIVE DOSE :32980.
     Route: 042
     Dates: start: 20160425, end: 20160425
  17. TAMOXIFEN [Suspect]
     Active Substance: TAMOXIFEN
     Indication: Breast cancer metastatic
     Dosage: 20 MG, 1X/DAY (CUMULATIVE DOSE : 180.0 MG)
     Route: 048
     Dates: start: 20161010, end: 20190708
  18. TAMOXIFEN [Suspect]
     Active Substance: TAMOXIFEN
     Dosage: 20 MG, 1X/DAY (CUMULATIVE DOSE : 30040.83 MG)
     Route: 048
     Dates: start: 20161010, end: 20190708
  19. AMITRIPTYLINE [Concomitant]
     Active Substance: AMITRIPTYLINE
     Indication: Metastases to central nervous system
     Dosage: 10 MG, 1X/DAY (PHARMACEUTICAL DOSE FORM: 245) (CUMULATIVE DOSE : 16490.0 MG)
     Route: 048
     Dates: start: 20210407
  20. AMITRIPTYLINE [Concomitant]
     Active Substance: AMITRIPTYLINE
     Dosage: 10 MG, 1X/DAY (PHARMACEUTICAL DOSE FORM: TABLET (UNCOATED, ORAL)) (CUMULATIVE DOSE : 16490.0 MG)
     Route: 048
     Dates: start: 20210407
  21. AMITRIPTYLINE [Concomitant]
     Active Substance: AMITRIPTYLINE
     Dosage: 10 MG, 1X/DAY (PHARMACEUTICAL DOSE FORM: TABLET (UNCOATED, ORAL)) (CUMULATIVE DOSE : 1379.583 MG)
     Route: 048
     Dates: start: 20210407
  22. BENZYDAMINE HYDROCHLORIDE [Concomitant]
     Active Substance: BENZYDAMINE HYDROCHLORIDE
     Indication: Mouth ulceration
     Dosage: 10 ML, 4X/DAY (CUMULATIVE DOSE : 4480.0 ML)
     Route: 061
     Dates: start: 20160611
  23. BUTYLSCOPOLAMINE BROMIDE [Concomitant]
     Active Substance: BUTYLSCOPOLAMINE BROMIDE
     Indication: Abdominal pain
     Dosage: 20 MG, 4X/DAY (PHARMACEUTICAL DOSE FORM: 245, TABLET (UNCOATED, ORAL)
     Route: 048
     Dates: start: 20160625
  24. BUTYLSCOPOLAMINE BROMIDE [Concomitant]
     Active Substance: BUTYLSCOPOLAMINE BROMIDE
     Dosage: 80 MG, QD (PHARMACEUTICAL DOSE FORM: TABLET (UNCOATED, ORAL)) (CUMULATIVE DOSE: 7840.0 MG)
     Route: 048
     Dates: start: 20160625
  25. CODEINE [Concomitant]
     Active Substance: CODEINE
     Indication: Phantom limb syndrome
     Dosage: 30 MG, 2X/DAY (PHARMACEUTICAL DOSE FORM: 245) (CUMULATIVE DOSE : 720.0 MG) TABLET (UNCOATED, ORAL)
     Route: 048
     Dates: start: 20160919
  26. CODEINE [Concomitant]
     Active Substance: CODEINE
     Indication: Musculoskeletal chest pain
     Dosage: 60 MG, 1X/DAY (PHARMACEUTICAL DOSE FORM: TABLET (UNCOATED, ORAL)) (CUMULATIVE DOSE : 720.0 MG)
     Route: 048
     Dates: start: 20160919
  27. DEXAMETHASONE [Concomitant]
     Active Substance: DEXAMETHASONE
     Indication: Metastases to central nervous system
     Dosage: 4 MG, 2X/DAY (PHARMACEUTICAL DOSE FORM: 245)
     Route: 048
     Dates: start: 201909, end: 20191010
  28. DEXAMETHASONE [Concomitant]
     Active Substance: DEXAMETHASONE
     Indication: Headache
     Dosage: 0.5 MG, ALTERNATE DAY (EVERY 2 DAYS; PHARMACEUTICAL DOSE FORM: 245) (CUMULATIVE DOSE: 294.7604 MG)
     Route: 048
     Dates: start: 20191224, end: 202002
  29. DEXAMETHASONE [Concomitant]
     Active Substance: DEXAMETHASONE
     Dosage: 1 MG, ALTERNATE DAY (EVERY 2 DAYS; PHARMACEUTICAL DOSE FORM: 245) (CUMULATIVE DOSE: 579.5208 MG)
     Route: 048
     Dates: start: 20191204, end: 20191223
  30. DEXAMETHASONE [Concomitant]
     Active Substance: DEXAMETHASONE
     Dosage: 4 MG, 1X/DAY (PHARMACEUTICAL DOSE FORM: 245) (CUMULATIVE DOSE: 5396.0 MG)
     Route: 048
     Dates: start: 20200611
  31. DEXAMETHASONE [Concomitant]
     Active Substance: DEXAMETHASONE
     Dosage: 2 MG, 1X/DAY (PHARMACEUTICAL DOSE FORM: 245)
     Route: 048
     Dates: start: 20191011, end: 20191125
  32. DEXAMETHASONE [Concomitant]
     Active Substance: DEXAMETHASONE
     Dosage: 1.5 MG, 1X/DAY (PHARMACEUTICAL DOSE FORM: 245) (CUMULATIVE DOSE : 1726.5625 MG)
     Route: 048
     Dates: start: 20191126, end: 20191203
  33. DEXAMETHASONE [Concomitant]
     Active Substance: DEXAMETHASONE
     Dosage: 4 MG, 1X/DAY (PHARMACEUTICAL DOSE FORM: 245)  CUMULATIVE DOSE: 6396.1665 MG
     Route: 048
     Dates: start: 20210216
  34. DEXAMETHASONE [Concomitant]
     Active Substance: DEXAMETHASONE
     Dosage: 0.5 MG, QD (DOSAGE FORM: 245)
     Route: 048
     Dates: start: 20191224, end: 202002
  35. DEXAMETHASONE [Concomitant]
     Active Substance: DEXAMETHASONE
     Dosage: 1 MG, QD (DOSAGE FORM: 245)
     Route: 048
     Dates: start: 20191204, end: 20191223
  36. DEXAMETHASONE [Concomitant]
     Active Substance: DEXAMETHASONE
     Dosage: 8 MG, QD (DOSAGE FORM:245; TABLET (UNCOATED, ORAL))
     Route: 048
     Dates: start: 201909, end: 20191010
  37. DEXAMETHASONE [Concomitant]
     Active Substance: DEXAMETHASONE
     Indication: Metastases to central nervous system
     Dosage: 0.5 MG, 2X/DAY (PHARMACEUTICAL DOSE FORM: TABLET (UNCOATED, ORAL)) (CUMULATIVE DOSE: 294.7604 MG)
     Route: 048
     Dates: start: 20191224, end: 202002
  38. DEXAMETHASONE [Concomitant]
     Active Substance: DEXAMETHASONE
     Indication: Headache
     Dosage: 4 MG, 1X/DAY (PHARMACEUTICAL DOSE FORM:TABLET (UNCOATED, ORAL) (CUMULATIVE DOSE: 5396.0 MG, 812.083
     Route: 048
     Dates: start: 20200611
  39. DEXAMETHASONE [Concomitant]
     Active Substance: DEXAMETHASONE
     Dosage: 1 MG, 2X/DAY (PHARMACEUTICAL DOSE FORM; TABLET (UNCOATED, ORAL)) (CUMULATIVE DOSE: 579.5208 MG)
     Route: 048
     Dates: start: 20191204, end: 20191223
  40. DEXAMETHASONE [Concomitant]
     Active Substance: DEXAMETHASONE
     Dosage: 8 MG, 1X/DAY (PHARMACEUTICAL DOSE FORM: TABLET (UNCOATED, ORAL))
     Route: 048
     Dates: start: 201909, end: 20191010
  41. DEXAMETHASONE [Concomitant]
     Active Substance: DEXAMETHASONE
     Dosage: 4 MG, 1X/DAY (PHARMACEUTICAL DOSE FORM: TABLET (UNCOATED, ORAL) (CUMULATIVE DOSE: 6396.1665 MG, 812.
     Route: 048
     Dates: start: 20210216
  42. DEXAMETHASONE [Concomitant]
     Active Substance: DEXAMETHASONE
     Dosage: 2 MG, 1X/DAY (PHARMACEUTICAL DOSE FORM: TABLET (UNCOATED, ORAL) (CUMULATIVE DOSE: 2210.0 MG, 812.083
     Route: 048
     Dates: start: 20191011, end: 20191125
  43. DEXAMETHASONE [Concomitant]
     Active Substance: DEXAMETHASONE
     Dosage: 1.5 MG, EVERY 1 DAY [PHARMACEUTICAL DOSE FORM: TABLET (UNCOATED, ORAL), CUMULATIVE DOSE TO FIRST REA
     Route: 048
     Dates: start: 20191126, end: 20191203
  44. DEXAMETHASONE [Concomitant]
     Active Substance: DEXAMETHASONE
     Dosage: 1 MG, ALTERNATE DAY, TABLET (UNCOATED, ORAL), CUMULATIVE DOSE TO FIRST REACTION: 812.083 MG
     Route: 048
     Dates: start: 20191204, end: 20191223
  45. DEXAMETHASONE [Concomitant]
     Active Substance: DEXAMETHASONE
     Dosage: 2 MG, 1X/DAY, TABLET (UNCOATED, ORAL), CUMULATIVE DOSE TO FIRST REACTION: 812.083 MG
     Route: 048
     Dates: start: 20191125
  46. DEXAMETHASONE [Concomitant]
     Active Substance: DEXAMETHASONE
     Dosage: 4 MG, 2X/DAY, TABLET (UNCOATED, ORAL), CUMULATIVE DOSE TO FIRST REACTION: 812.083 MG
     Route: 048
     Dates: start: 201909, end: 20191010
  47. DEXAMETHASONE [Concomitant]
     Active Substance: DEXAMETHASONE
     Dosage: 0.5 MG, ALTERNATE DAY, TABLET (UNCOATED, ORAL), CUMULATIVE DOSE TO FIRST REACTION: 812.083 MG
     Route: 048
     Dates: start: 20191224, end: 202002
  48. DEXAMETHASONE [Concomitant]
     Active Substance: DEXAMETHASONE
     Dosage: 2.5 MG, 1X/DAY, TABLET (UNCOATED, ORAL), CUMULATIVE DOSE TO FIRST REACTION: 812.083 MG
     Route: 048
     Dates: start: 20191203
  49. DEXAMETHASONE [Concomitant]
     Active Substance: DEXAMETHASONE
     Dosage: 1 MG, 1X/DAY, TABLET (UNCOATED, ORAL), CUMULATIVE DOSE TO FIRST REACTION: 812.083 MG
     Route: 048
     Dates: start: 20191223
  50. DOCUSATE [Concomitant]
     Active Substance: DOCUSATE
     Indication: Constipation
     Dosage: 100 MG (PHARMACEUTICAL DODSE FORM: 245)
     Route: 048
     Dates: start: 20210226
  51. DOCUSATE [Concomitant]
     Active Substance: DOCUSATE
     Dosage: 100 MG (PHARMACEUTICAL DOSE FORM: TABLET (UNCOATED, ORAL))
     Route: 048
     Dates: start: 20210226
  52. DOCUSATE [Concomitant]
     Active Substance: DOCUSATE
     Dosage: 100 MG (PHARMACEUTICAL DOSE FORM: TABLET (UNCOATED, ORAL))
     Route: 048
     Dates: start: 20210228
  53. IBUPROFEN [Concomitant]
     Active Substance: IBUPROFEN
     Indication: Musculoskeletal pain
     Dosage: 200 MG, AS NEEDED (PHARMACEUTICAL DOSE FORM: 245)
     Route: 048
     Dates: start: 20160612
  54. IBUPROFEN [Concomitant]
     Active Substance: IBUPROFEN
     Dosage: 200 MG, AS NEEDED TABLET (UNCOATED, ORAL)
     Route: 048
     Dates: start: 20160612
  55. KADCYLA [Concomitant]
     Active Substance: ADO-TRASTUZUMAB EMTANSINE
     Indication: Pulmonary mass
     Dosage: 220 MG, MONTHLY (PHARMACEUTICAL DOSE FORM: 230) (CUMULATIVE DOSE: 9467.333 MG)
     Route: 042
     Dates: start: 20200414
  56. KADCYLA [Concomitant]
     Active Substance: ADO-TRASTUZUMAB EMTANSINE
     Dosage: 220 MG, MONTHLY TABLET (UNCOATED, ORAL)(CUMULATIVE DOSE: 9467.333 MG)
     Route: 042
     Dates: start: 20200414
  57. POLYETHYLENE GLYCOL 3350\POTASSIUM CHLORIDE\SODIUM BICARBONATE\SODIUM [Concomitant]
     Active Substance: POLYETHYLENE GLYCOL 3350\POTASSIUM CHLORIDE\SODIUM BICARBONATE\SODIUM CHLORIDE
     Dosage: 1 DOSE, 1X/DAY
     Route: 048
     Dates: start: 20160627
  58. OMEPRAZOLE [Concomitant]
     Active Substance: OMEPRAZOLE
     Indication: Metastases to central nervous system
     Dosage: 20 MG, 2X/DAY (PHARMACEUTICAL DOSE FORM: 245, TABLET (UNCOATED, ORAL))
     Route: 048
     Dates: start: 201909
  59. OMEPRAZOLE [Concomitant]
     Active Substance: OMEPRAZOLE
     Dosage: 40 MG, 1X/DAY (PHARMACEUTICAL DOSE FORM: TABLET (UNCOATED, ORAL)
     Route: 048
     Dates: start: 201909
  60. MORPHINE SULFATE [Concomitant]
     Active Substance: MORPHINE SULFATE
     Indication: Metastases to central nervous system
     Dosage: 1 DOSE, AS NEEDED
     Route: 048
     Dates: start: 20210311
  61. MORPHINE SULFATE [Concomitant]
     Active Substance: MORPHINE SULFATE
     Dosage: 10MG, AS NEEDED
     Route: 048
     Dates: start: 20210311
  62. ACETAMINOPHEN [Concomitant]
     Active Substance: ACETAMINOPHEN
     Indication: Musculoskeletal pain
     Dosage: 1 G, AS NEEDED (PHARMACEUTICAL DOSE FORM: 245)
     Route: 048
     Dates: start: 20160612
  63. ACETAMINOPHEN [Concomitant]
     Active Substance: ACETAMINOPHEN
     Dosage: 1 G, AS NECESSARY (PHARMACEUTICAL DOSE FORM: TABLET (UNCOATED, ORAL)
     Route: 048
     Dates: start: 20160612
  64. CEPHRADINE [Concomitant]
     Active Substance: CEPHRADINE
     Dosage: 250 MG, EVERY 0.25 DAYS
     Route: 048
     Dates: start: 20201207, end: 20201214
  65. CEPHRADINE [Concomitant]
     Active Substance: CEPHRADINE
     Dosage: 1000 MG, QD (DOSAGE FORM: 245)
     Route: 048
     Dates: start: 20201207, end: 20201214
  66. FLUCLOXACILLIN [Concomitant]
     Active Substance: FLUCLOXACILLIN
     Indication: Cellulitis
     Dosage: 500 MG, EVERY 0.25 DAYS
     Route: 048
     Dates: start: 20201215, end: 20201222
  67. FLUCLOXACILLIN [Concomitant]
     Active Substance: FLUCLOXACILLIN
     Dosage: 2000 MG, QD (DOSAGE FORM: 245)
     Route: 048
     Dates: start: 20201215, end: 20201222
  68. PERMETHRIN [Concomitant]
     Active Substance: PERMETHRIN
     Indication: Skin infection
     Dosage: 5 % (PHARMACEUTICAL DOSE FORM: 17)
     Route: 061
     Dates: start: 20210311, end: 20210311
  69. PERMETHRIN [Concomitant]
     Active Substance: PERMETHRIN
     Dosage: UNK
  70. MINERAL OIL\PARAFFIN [Concomitant]
     Active Substance: MINERAL OIL\PARAFFIN
     Dosage: UNK, 1 TABLESPOON
     Route: 061
     Dates: start: 20210218
  71. NITROFURANTOIN [Concomitant]
     Active Substance: NITROFURANTOIN
     Indication: Urinary tract infection
     Dosage: 100 MG, EVERY 0.5 DAY
     Route: 048
     Dates: start: 20201202, end: 20201209
  72. NITROFURANTOIN [Concomitant]
     Active Substance: NITROFURANTOIN
     Dosage: 200 MG, QD
     Route: 048
     Dates: start: 20201202, end: 20201209
  73. KADCYLA [Concomitant]
     Active Substance: ADO-TRASTUZUMAB EMTANSINE
     Dosage: 220 MG, MONTHLY
     Route: 042
     Dates: start: 20200414
  74. KADCYLA [Concomitant]
     Active Substance: ADO-TRASTUZUMAB EMTANSINE
     Dosage: 220 MG, MONTHLY (COMULATIVE DOSE:9467.333 MG)
     Route: 042
     Dates: start: 20200414
  75. POLYETHYLENE GLYCOL 3350 [Concomitant]
     Active Substance: POLYETHYLENE GLYCOL 3350
     Dosage: UNK

REACTIONS (13)
  - Death [Fatal]
  - Pulmonary mass [Fatal]
  - Lymphoedema [Fatal]
  - Vision blurred [Fatal]
  - Metastases to central nervous system [Fatal]
  - Cellulitis [Fatal]
  - Acarodermatitis [Fatal]
  - Urinary tract infection [Fatal]
  - Skin infection [Fatal]
  - Headache [Fatal]
  - Constipation [Fatal]
  - Fatigue [Fatal]
  - Incorrect route of product administration [Unknown]

NARRATIVE: CASE EVENT DATE: 20161001
